FAERS Safety Report 12856114 (Version 1)
Quarter: 2016Q4

REPORT INFORMATION
  Report Type: Spontaneous
  Country: US (occurrence: US)
  Receive Date: 20161017
  Receipt Date: 20161017
  Transmission Date: 20170207
  Serious: Yes (Other)
  Sender: FDA-Public Use
  Company Number: None

PATIENT
  Age: 52 Year
  Sex: Female
  Weight: 56.7 kg

DRUGS (4)
  1. HYOSCYAMINE. [Suspect]
     Active Substance: HYOSCYAMINE
     Indication: ABDOMINAL PAIN UPPER
     Dosage: ?          QUANTITY:20 TABLET(S);?
     Route: 048
     Dates: start: 20160819, end: 20160819
  2. BIOTIN [Concomitant]
     Active Substance: BIOTIN
  3. VITAMIN D [Concomitant]
     Active Substance: CHOLECALCIFEROL
  4. HYOSCYAMINE. [Suspect]
     Active Substance: HYOSCYAMINE
     Indication: DIARRHOEA
     Dosage: ?          QUANTITY:20 TABLET(S);?
     Route: 048
     Dates: start: 20160819, end: 20160819

REACTIONS (3)
  - Drug effect increased [None]
  - Product use issue [None]
  - Tinnitus [None]

NARRATIVE: CASE EVENT DATE: 20160821
